FAERS Safety Report 7271496-5 (Version None)
Quarter: 2011Q1

REPORT INFORMATION
  Report Type: 
  Country: None (occurrence: None)
  Receive Date: 20110128
  Receipt Date: 20110128
  Transmission Date: 20110831
  Serious: Yes (Other)
  Sender: FDA-Public Use
  Company Number: None

PATIENT
  Age: 71 Year
  Sex: Female
  Weight: 97.977 kg

DRUGS (1)
  1. PROPOXYPHENE NAPSYLATE AND ACETAMINOPHEN [Suspect]
     Indication: PAIN
     Dosage: TWO (2) 4-6 HRS
     Dates: start: 20060101, end: 20101130

REACTIONS (3)
  - JOINT SWELLING [None]
  - DYSPNOEA [None]
  - NO THERAPEUTIC RESPONSE [None]
